FAERS Safety Report 3970365 (Version 3)
Quarter: 2024Q4

REPORT INFORMATION
  Report Type: Spontaneous
  Country: IT (occurrence: IT)
  Receive Date: 20030708
  Receipt Date: 20241107
  Transmission Date: 20250115
  Serious: Yes (Hospitalization, Other)
  Sender: NOVARTIS
  Company Number: PHBS2003IT06598

PATIENT
  Age: 59 Year
  Sex: Male
  Weight: 88.7 kg

DRUGS (12)
  1. CYCLOSPORINE [Suspect]
     Active Substance: CYCLOSPORINE
     Indication: Glomerulosclerosis
     Dosage: 3 MG, QD
     Route: 048
     Dates: start: 199610, end: 199711
  2. PREDNISONE [Suspect]
     Active Substance: PREDNISONE
     Indication: Focal segmental glomerulosclerosis
     Dosage: 24 MG, QOD, 24MG/48H 15 MONTHS
     Route: 065
     Dates: start: 199610
  3. PREDNISONE [Suspect]
     Active Substance: PREDNISONE
     Dosage: UNK1MG/KG/DAY FOR 8
     Route: 065
     Dates: start: 1998
  4. PREDNISONE [Suspect]
     Active Substance: PREDNISONE
     Dosage: 24MG/48H 15 MONTHS THEN 1MG/KG/DAY FOR 8
     Route: 065
  5. CYCLOPHOSPHAMIDE [Suspect]
     Active Substance: CYCLOPHOSPHAMIDE
     Indication: Focal segmental glomerulosclerosis
     Dosage: 100 MG/DAY
     Route: 065
     Dates: start: 199803, end: 199810
  6. CYCLOPHOSPHAMIDE [Suspect]
     Active Substance: CYCLOPHOSPHAMIDE
     Dosage: 100 MG, DAILY [100MG/DAY FOR 6 MONTHS]
     Route: 065
  7. FUROSEMIDE [Suspect]
     Active Substance: FUROSEMIDE
     Indication: Product used for unknown indication
     Dosage: UNK
     Route: 042
     Dates: start: 199801, end: 1998
  8. ENALAPRIL [Concomitant]
     Active Substance: ENALAPRIL
     Indication: Product used for unknown indication
     Dosage: 10 MG, QD
     Route: 065
     Dates: end: 199510
  9. ENALAPRIL [Concomitant]
     Active Substance: ENALAPRIL
     Dosage: 20 MG, QD
     Route: 048
     Dates: start: 199510
  10. ATENOLOL [Concomitant]
     Active Substance: ATENOLOL
     Indication: Product used for unknown indication
     Dosage: UNK
     Route: 065
  11. NIFEDIPINE [Concomitant]
     Active Substance: NIFEDIPINE
     Indication: Product used for unknown indication
     Dosage: UNK
     Route: 065
  12. ALLOPURINOL [Concomitant]
     Active Substance: ALLOPURINOL
     Indication: Product used for unknown indication
     Dosage: UNK
     Route: 065

REACTIONS (14)
  - Kaposi^s sarcoma [Recovered/Resolved]
  - Anaemia [Unknown]
  - Occult blood positive [Unknown]
  - Nephropathy toxic [Unknown]
  - Blood creatinine increased [Unknown]
  - Tubulointerstitial nephritis [Unknown]
  - Oliguria [Unknown]
  - Generalised oedema [Unknown]
  - Glomerular filtration rate decreased [Unknown]
  - Rash [Unknown]
  - Pruritus [Unknown]
  - Eosinophilia [Unknown]
  - Hypertension [Unknown]
  - Skin lesion [Recovered/Resolved]
